FAERS Safety Report 7321293 (Version 3)
Quarter: 2017Q1

REPORT INFORMATION
  Report Type: Report from Study
  Country: JP (occurrence: JP)
  Receive Date: 20100316
  Receipt Date: 20170224
  Transmission Date: 20170429
  Serious: Yes (Death, Hospitalization, Other)
  Sender: FDA-Public Use
  Company Number: JP-PFIZER INC-2010028647

PATIENT
  Age: 59 Year
  Sex: Male

DRUGS (10)
  1. TRANSAMIN [Concomitant]
     Active Substance: TRANEXAMIC ACID
     Dosage: 500 MG, 2X/DAY
     Route: 048
     Dates: end: 20100101
  2. EBUTOL /00022301/ [Concomitant]
     Indication: MYCOBACTERIUM AVIUM COMPLEX INFECTION
     Dosage: 750 MG, 1X/DAY
     Route: 048
     Dates: start: 20090917, end: 20100101
  3. AVELOX [Concomitant]
     Active Substance: MOXIFLOXACIN HYDROCHLORIDE
     Indication: MYCOBACTERIUM AVIUM COMPLEX INFECTION
     Dosage: 400 MG, 1X/DAY
     Route: 048
     Dates: start: 20091130, end: 20100101
  4. RISPERDAL [Concomitant]
     Active Substance: RISPERIDONE
     Dosage: 0.5 MG, 1X/DAY
     Route: 048
     Dates: end: 20100101
  5. CLARITH [Concomitant]
     Active Substance: CLARITHROMYCIN
     Indication: MYCOBACTERIUM AVIUM COMPLEX INFECTION
     Dosage: 800 MG, 1X/DAY
     Route: 048
     Dates: start: 20090917, end: 20100101
  6. CRAVIT [Concomitant]
     Active Substance: LEVOFLOXACIN
     Indication: MYCOBACTERIUM AVIUM COMPLEX INFECTION
     Dosage: 300 MG, 1X/DAY
     Route: 048
     Dates: start: 20090917, end: 20091129
  7. MEDICON /00048102/ [Concomitant]
     Active Substance: DEXTROMETHORPHAN HYDROBROMIDE
     Dosage: 15 MG, 2X/DAY
     Dates: end: 20100101
  8. HOKUNALIN /00654902/ [Concomitant]
     Dosage: 2 MG, 1X/DAY
     Route: 062
     Dates: end: 20100101
  9. MYCOBUTIN [Suspect]
     Active Substance: RIFABUTIN
     Indication: MYCOBACTERIUM AVIUM COMPLEX INFECTION
     Dosage: 150 MG, 1X/DAY
     Route: 048
     Dates: start: 20090904, end: 20100101
  10. THEO-DUR [Concomitant]
     Active Substance: THEOPHYLLINE ANHYDROUS
     Dosage: 100 MG, 2X/DAY
     Route: 048
     Dates: start: 20090917, end: 20100101

REACTIONS (3)
  - Haemoptysis [Fatal]
  - Drug ineffective [Fatal]
  - Asphyxia [Fatal]

NARRATIVE: CASE EVENT DATE: 20091218
